FAERS Safety Report 12762279 (Version 1)
Quarter: 2016Q3

REPORT INFORMATION
  Report Type: Spontaneous
  Country: JP (occurrence: JP)
  Receive Date: 20160920
  Receipt Date: 20160920
  Transmission Date: 20161109
  Serious: Yes (Other)
  Sender: FDA-Public Use
  Company Number: JP-GLAXOSMITHKLINE-JP2016JPN133984

PATIENT
  Age: 68 Year
  Sex: Male

DRUGS (1)
  1. FLUTIDE [Suspect]
     Active Substance: FLUTICASONE PROPIONATE
     Route: 055

REACTIONS (1)
  - Hypokalaemia [Unknown]
